FAERS Safety Report 4847431-3 (Version None)
Quarter: 2005Q4

REPORT INFORMATION
  Report Type: 
  Country: None (occurrence: None)
  Receive Date: 20051205
  Receipt Date: 20051122
  Transmission Date: 20060501
  Serious: Yes (Disabling)
  Sender: FDA-Public Use
  Company Number: 2005160909

PATIENT
  Sex: Female

DRUGS (1)
  1. DEPO-MEDROL [Suspect]
     Indication: RADICULAR PAIN
     Dosage: EPIDURAL
     Route: 008
     Dates: start: 20001113

REACTIONS (10)
  - ABASIA [None]
  - ARACHNOIDITIS [None]
  - COMPLEX REGIONAL PAIN SYNDROME [None]
  - FAECAL INCONTINENCE [None]
  - FIBROSIS [None]
  - NERVE ROOT INJURY [None]
  - PAIN IN EXTREMITY [None]
  - SEXUAL DYSFUNCTION [None]
  - SPINAL CORD INJURY [None]
  - URINARY INCONTINENCE [None]
